FAERS Safety Report 10409939 (Version 1)
Quarter: 2014Q3

REPORT INFORMATION
  Report Type: Report from Study
  Country: ZA (occurrence: ZA)
  Receive Date: 20140826
  Receipt Date: 20140826
  Transmission Date: 20150326
  Serious: Yes (Hospitalization, Other)
  Sender: FDA-Public Use
  Company Number: ZA-BAYER-2014-059128

PATIENT
  Sex: Male

DRUGS (1)
  1. BETAFERON [Suspect]
     Active Substance: INTERFERON BETA-1B
     Indication: MULTIPLE SCLEROSIS
     Dosage: UNK
     Dates: start: 200807

REACTIONS (37)
  - Multiple sclerosis relapse [Recovering/Resolving]
  - Dizziness [None]
  - Gait disturbance [Recovered/Resolved]
  - Exposure via father [None]
  - Multiple sclerosis relapse [None]
  - Pain in extremity [None]
  - Gait disturbance [None]
  - Hand fracture [None]
  - Gastrointestinal disorder [None]
  - Multiple sclerosis relapse [None]
  - Blindness unilateral [Recovering/Resolving]
  - Anxiety [None]
  - Injection site reaction [None]
  - Hypoaesthesia [None]
  - Diplopia [None]
  - Optic neuritis [Recovering/Resolving]
  - Pain [Not Recovered/Not Resolved]
  - Post-traumatic pain [None]
  - Burning sensation [None]
  - Injection site pain [None]
  - Fatigue [None]
  - Vertigo [None]
  - Dizziness [Recovering/Resolving]
  - Road traffic accident [None]
  - Hospitalisation [None]
  - Fatigue [None]
  - Diplopia [None]
  - Vision blurred [None]
  - Malaise [None]
  - Pain in extremity [None]
  - Balance disorder [None]
  - Loss of consciousness [None]
  - Malaise [Recovering/Resolving]
  - Muscular weakness [None]
  - Stress [None]
  - Feeling abnormal [Recovering/Resolving]
  - Procedural pain [None]

NARRATIVE: CASE EVENT DATE: 2008
